FAERS Safety Report 5344033-X (Version None)
Quarter: 2007Q2

REPORT INFORMATION
  Report Type: 
  Country: None (occurrence: None)
  Receive Date: 20070604
  Receipt Date: 20070525
  Transmission Date: 20071010
  Serious: Yes (Life-Threatening, Hospitalization)
  Sender: FDA-Public Use
  Company Number: CA-ALLERGAN-0704614US

PATIENT
  Sex: Male
  Weight: 73.923 kg

DRUGS (3)
  1. BOTOX [Suspect]
     Indication: SKIN WRINKLING
     Dosage: 20 UNITS, SINGLE
     Route: 030
     Dates: start: 20070401, end: 20070401
  2. LAMOTRIGINE [Concomitant]
     Indication: DEPRESSION
     Dosage: 100 MG, QD
  3. WELLBUTRIN [Concomitant]
     Indication: DEPRESSION
     Dosage: 100 MG, QD

REACTIONS (5)
  - ACUTE RESPIRATORY DISTRESS SYNDROME [None]
  - CARDIAC ARREST [None]
  - COMA [None]
  - GRAND MAL CONVULSION [None]
  - VENTRICULAR FIBRILLATION [None]
